FAERS Safety Report 5306485-0 (Version None)
Quarter: 2007Q2

REPORT INFORMATION
  Report Type: 
  Country: None (occurrence: None)
  Receive Date: 20070416
  Receipt Date: 20070410
  Transmission Date: 20071010
  Serious: Yes (Death, Life-Threatening)
  Sender: FDA-Public Use
  Company Number: 2007SP005778

PATIENT
  Age: 52 Year
  Sex: Male

DRUGS (3)
  1. TEMOZOLOMIDE (S-P) (TEMOZOLOMIDE) [Suspect]
     Indication: METASTASES TO NERVOUS SYSTEM
     Dosage: 150 MG/M2;PO
     Route: 048
     Dates: start: 20020708
  2. LOMUSTINE (LOMUSTINE) [Suspect]
     Indication: METASTASES TO NERVOUS SYSTEM
     Dosage: PO
     Route: 048
  3. LANSOPRAZOLE (CON.) [Concomitant]

REACTIONS (3)
  - BONE MARROW FAILURE [None]
  - BRONCHOPNEUMONIA [None]
  - DRUG TOXICITY [None]
